FAERS Safety Report 5384954-5 (Version None)
Quarter: 2007Q3

REPORT INFORMATION
  Report Type: 
  Country: None (occurrence: None)
  Receive Date: 20070709
  Receipt Date: 20070621
  Transmission Date: 20080115
  Serious: Yes (Hospitalization)
  Sender: FDA-Public Use
  Company Number: 158333USA

PATIENT
  Age: 54 Year
  Sex: Male

DRUGS (1)
  1. FLUCONAZOLE [Suspect]
     Indication: FUNGAL INFECTION
     Dosage: 300 MG (100 MG, 3 IN 1 )

REACTIONS (6)
  - DEHYDRATION [None]
  - DRUG TOXICITY [None]
  - INCORRECT DOSE ADMINISTERED [None]
  - OVERDOSE [None]
  - TACHYCARDIA [None]
  - VOMITING [None]
